FAERS Safety Report 15145434 (Version 4)
Quarter: 2018Q3

REPORT INFORMATION
  Report Type: Spontaneous
  Country: US (occurrence: US)
  Receive Date: 20180713
  Receipt Date: 20180917
  Transmission Date: 20181010
  Serious: No
  Sender: FDA-Public Use
  Company Number: US-ACTELION-A-US2018-175405

PATIENT
  Age: 55 Year
  Sex: Female
  Weight: 136.5 kg

DRUGS (4)
  1. UPTRAVI [Suspect]
     Active Substance: SELEXIPAG
     Indication: PULMONARY ARTERIAL HYPERTENSION
     Dosage: 800 MCG, BID
     Route: 048
     Dates: start: 20180625, end: 20180727
  2. UPTRAVI [Suspect]
     Active Substance: SELEXIPAG
     Dosage: 600 MCG, BID
     Route: 048
  3. ADEMPAS [Concomitant]
     Active Substance: RIOCIGUAT
  4. UPTRAVI [Suspect]
     Active Substance: SELEXIPAG
     Dosage: 400 MCG, BID
     Route: 048

REACTIONS (18)
  - Head injury [Unknown]
  - Abdominal discomfort [Recovering/Resolving]
  - Fall [Unknown]
  - Dizziness postural [Unknown]
  - Loss of consciousness [Unknown]
  - Vomiting [Not Recovered/Not Resolved]
  - Decreased appetite [Not Recovered/Not Resolved]
  - Unevaluable event [Unknown]
  - Dyspnoea [Not Recovered/Not Resolved]
  - Diarrhoea [Unknown]
  - Humidity intolerance [Not Recovered/Not Resolved]
  - Sleep disorder [Unknown]
  - Nausea [Not Recovered/Not Resolved]
  - Headache [Not Recovered/Not Resolved]
  - Malaise [Not Recovered/Not Resolved]
  - Bedridden [Not Recovered/Not Resolved]
  - Alopecia [Unknown]
  - Drug intolerance [Unknown]

NARRATIVE: CASE EVENT DATE: 20180707
